FAERS Safety Report 15072610 (Version 1)
Quarter: 2018Q2

REPORT INFORMATION
  Report Type: Spontaneous
  Country: US (occurrence: US)
  Receive Date: 20180627
  Receipt Date: 20180627
  Transmission Date: 20180711
  Serious: No
  Sender: FDA-Public Use
  Company Number: US-B.I. PHARMACEUTICALS,INC./RIDGEFIELD-2018-BI-032038

PATIENT
  Sex: Female

DRUGS (1)
  1. JARDIANCE [Suspect]
     Active Substance: EMPAGLIFLOZIN
     Indication: PRODUCT USED FOR UNKNOWN INDICATION
     Route: 048
     Dates: start: 20180605

REACTIONS (5)
  - Pollakiuria [Unknown]
  - Pruritus [Not Recovered/Not Resolved]
  - Dehydration [Unknown]
  - Thirst [Unknown]
  - Fungal infection [Not Recovered/Not Resolved]
